FAERS Safety Report 25381260 (Version 5)
Quarter: 2025Q3

REPORT INFORMATION
  Report Type: Spontaneous
  Country: IN (occurrence: IN)
  Receive Date: 20250530
  Receipt Date: 20250910
  Transmission Date: 20251020
  Serious: Yes (Other)
  Sender: PFIZER
  Company Number: IN-PFIZER INC-PV202300062027

PATIENT
  Age: 62 Year
  Sex: Female

DRUGS (12)
  1. PALBOCICLIB [Suspect]
     Active Substance: PALBOCICLIB
     Indication: Breast cancer metastatic
     Route: 048
  2. PALBOCICLIB [Suspect]
     Active Substance: PALBOCICLIB
     Route: 048
     Dates: start: 20231128
  3. ZOLEDRONIC ACID [Concomitant]
     Active Substance: ZOLEDRONIC ACID
     Indication: Breast cancer
  4. ZOLEDRONIC ACID [Concomitant]
     Active Substance: ZOLEDRONIC ACID
     Dates: start: 20220819
  5. ZOLEDRONIC ACID [Concomitant]
     Active Substance: ZOLEDRONIC ACID
     Dates: start: 20230303
  6. ZOLEDRONIC ACID [Concomitant]
     Active Substance: ZOLEDRONIC ACID
     Dates: start: 20240424
  7. LETROZOLE [Concomitant]
     Active Substance: LETROZOLE
     Dosage: 2.5 MG, 1X/DAY
  8. CALCIUM CARBONATE\CHOLECALCIFEROL [Concomitant]
     Active Substance: CALCIUM CARBONATE\CHOLECALCIFEROL
     Dosage: UNK, 1X/DAY
  9. CREMAFFIN PLUS [Concomitant]
     Indication: Constipation
     Dosage: 10 ML, 1X/DAY (AT BED TIME)
  10. ACETAMINOPHEN [Concomitant]
     Active Substance: ACETAMINOPHEN
     Indication: Pain
     Dosage: 1 G, 3X/DAY (AS NEEDED)
  11. VENUSIA [Concomitant]
  12. SODIUM BICARBONATE [Concomitant]
     Active Substance: SODIUM BICARBONATE
     Dosage: UNK, 3X/DAY (GARGLE)

REACTIONS (34)
  - White blood cell count decreased [Unknown]
  - Neutropenia [Recovering/Resolving]
  - Haematotoxicity [Unknown]
  - Hypertension [Recovering/Resolving]
  - Neutrophil percentage decreased [Unknown]
  - Lacrimation increased [Unknown]
  - Decreased appetite [Unknown]
  - Haemoglobin decreased [Unknown]
  - Platelet count decreased [Unknown]
  - Visual impairment [Unknown]
  - Dry skin [Unknown]
  - Red blood cell count decreased [Unknown]
  - Back pain [Unknown]
  - Monocyte percentage increased [Unknown]
  - Basophil percentage increased [Unknown]
  - Haematocrit decreased [Unknown]
  - Mean cell volume increased [Unknown]
  - Red cell distribution width increased [Unknown]
  - Constipation [Unknown]
  - Palmar-plantar erythrodysaesthesia syndrome [Unknown]
  - Pain [Unknown]
  - Investigation abnormal [Unknown]
  - Lymphocyte percentage decreased [Unknown]
  - Aspartate aminotransferase decreased [Unknown]
  - Alanine aminotransferase increased [Unknown]
  - Blood alkaline phosphatase decreased [Unknown]
  - Mean cell haemoglobin increased [Unknown]
  - Lymphocyte percentage increased [Unknown]
  - Gastritis [Recovered/Resolved]
  - Nausea [Recovered/Resolved]
  - Pyrexia [Recovered/Resolved]
  - Mucosal inflammation [Unknown]
  - Gingival swelling [Unknown]
  - Toothache [Unknown]

NARRATIVE: CASE EVENT DATE: 20221010
